FAERS Safety Report 6400714-8 (Version None)
Quarter: 2009Q4

REPORT INFORMATION
  Report Type: 
  Country: None (occurrence: None)
  Receive Date: 20091014
  Receipt Date: 20091002
  Transmission Date: 20100525
  Serious: Yes (Hospitalization)
  Sender: FDA-Public Use
  Company Number: CA-ELI_LILLY_AND_COMPANY-CA200910000871

PATIENT
  Age: 73 Year
  Sex: Female

DRUGS (12)
  1. FORTEO [Suspect]
     Indication: OSTEOPOROSIS
     Dosage: 20 UG, DAILY (1/D)
     Route: 058
     Dates: start: 20080416, end: 20090918
  2. FORTEO [Suspect]
     Dosage: 20 UG, DAILY (1/D)
     Route: 058
     Dates: start: 20090929
  3. MORPHINE [Concomitant]
  4. DOXEPIN HCL [Concomitant]
  5. LORAZEPAM [Concomitant]
  6. SINGULAIR [Concomitant]
  7. SYMBICORT [Concomitant]
  8. NORVASC [Concomitant]
  9. METOPROLOL [Concomitant]
  10. ALLEGRA [Concomitant]
  11. GRAVOL TAB [Concomitant]
  12. IMODIUM [Concomitant]

REACTIONS (1)
  - BACK PAIN [None]
